FAERS Safety Report 7670771 (Version 5)
Quarter: 2013Q3

REPORT INFORMATION
  Report Type: Spontaneous
  Country: US (occurrence: US)
  Receive Date: 20101116
  Receipt Date: 20130827
  Transmission Date: 20140515
  Serious: Yes (Other)
  Sender: FDA-Public Use
  Company Number: US-JNJFOC-20101102528

PATIENT
  Age: 73 Year
  Sex: Female
  Weight: 77.11 kg

DRUGS (9)
  1. REMICADE [Suspect]
     Indication: RHEUMATOID ARTHRITIS
     Route: 042
     Dates: start: 20100930
  2. REMICADE [Suspect]
     Indication: RHEUMATOID ARTHRITIS
     Route: 042
     Dates: start: 20101019, end: 20101019
  3. PREDNISONE [Concomitant]
     Indication: RHEUMATOID ARTHRITIS
     Dosage: ONE 10 MG. TABLET + THREE 1MG. TABLETS
     Route: 048
  4. DIOVAN [Concomitant]
     Indication: HYPERTENSION
     Route: 048
  5. PLAQUENIL [Concomitant]
     Indication: RHEUMATOID ARTHRITIS
     Route: 048
  6. ESTROPIPATE [Concomitant]
     Indication: HORMONE THERAPY
     Route: 048
  7. TRAMADOL [Concomitant]
     Indication: PAIN
     Route: 065
  8. PREMARIN [Concomitant]
     Dosage: 1/2 OF APPLICATOR (1.25 MG PER APPLICATOR)
     Route: 067
  9. CLARITIN REDI-TAB [Concomitant]
     Indication: PREMEDICATION
     Route: 060
     Dates: start: 20101019

REACTIONS (6)
  - Choking [Recovered/Resolved]
  - Feeling abnormal [Recovered/Resolved]
  - Chest discomfort [Recovered/Resolved]
  - Infusion related reaction [Recovered/Resolved]
  - Hypertension [Recovered/Resolved]
  - Drug hypersensitivity [Recovered/Resolved]
